FAERS Safety Report 6172046-7 (Version None)
Quarter: 2009Q2

REPORT INFORMATION
  Report Type: 
  Country: None (occurrence: None)
  Receive Date: 20090429
  Receipt Date: 20090427
  Transmission Date: 20091009
  Serious: Yes (Hospitalization, Other)
  Sender: FDA-Public Use
  Company Number: GB-PFIZER INC-2009154671

PATIENT
  Age: 43 Year
  Sex: Male

DRUGS (4)
  1. FLUCONAZOLE [Suspect]
     Route: 042
  2. ZOCOR [Suspect]
  3. CO-TRIMOXAZOLE [Concomitant]
  4. CLOPIDOGREL BISULFATE [Suspect]

REACTIONS (3)
  - DRUG INTERACTION [None]
  - RENAL FAILURE ACUTE [None]
  - RHABDOMYOLYSIS [None]
